FAERS Safety Report 20659350 (Version 1)
Quarter: 2022Q1

REPORT INFORMATION
  Report Type: Spontaneous
  Country: US (occurrence: US)
  Receive Date: 20220331
  Receipt Date: 20220331
  Transmission Date: 20220423
  Serious: No
  Sender: FDA-Public Use
  Company Number: US-VERTEX PHARMACEUTICALS-2022-004786

PATIENT
  Sex: Female

DRUGS (8)
  1. KALYDECO [Suspect]
     Active Substance: IVACAFTOR
     Indication: Cystic fibrosis
     Dosage: 150 MG
     Route: 048
     Dates: start: 2019, end: 201912
  2. KALYDECO [Suspect]
     Active Substance: IVACAFTOR
     Dosage: 150 MG
     Route: 048
     Dates: start: 2020
  3. SYMBICORT [Concomitant]
     Active Substance: BUDESONIDE\FORMOTEROL FUMARATE DIHYDRATE
     Indication: Asthma
     Dosage: 80/4.5 AT 2 PUFFS, BID
  4. SYMBICORT [Concomitant]
     Active Substance: BUDESONIDE\FORMOTEROL FUMARATE DIHYDRATE
     Indication: Bronchospasm
  5. SODIUM CHLORIDE [Concomitant]
     Active Substance: SODIUM CHLORIDE
     Indication: Asthma
  6. SODIUM CHLORIDE [Concomitant]
     Active Substance: SODIUM CHLORIDE
     Indication: Bronchospasm
  7. PULMOZYME [Concomitant]
     Active Substance: DORNASE ALFA
     Indication: Asthma
  8. PULMOZYME [Concomitant]
     Active Substance: DORNASE ALFA
     Indication: Bronchospasm

REACTIONS (2)
  - Rash [Recovered/Resolved]
  - Infective pulmonary exacerbation of cystic fibrosis [Recovered/Resolved]

NARRATIVE: CASE EVENT DATE: 20191201
